FAERS Safety Report 18291665 (Version 1)
Quarter: 2020Q3

REPORT INFORMATION
  Report Type: Spontaneous
  Country: US (occurrence: US)
  Receive Date: 20200922
  Receipt Date: 20200922
  Transmission Date: 20201103
  Serious: No
  Sender: FDA-Public Use
  Company Number: US-HIKMA PHARMACEUTICALS USA INC.-US-H14001-20-00891

PATIENT

DRUGS (1)
  1. CHLOROPROCAINE [Suspect]
     Active Substance: CHLOROPROCAINE
     Indication: ANAESTHESIA
     Route: 065

REACTIONS (1)
  - Drug ineffective [Unknown]
